FAERS Safety Report 7908992-0 (Version None)
Quarter: 2011Q4

REPORT INFORMATION
  Report Type: 
  Country: None (occurrence: None)
  Receive Date: 20111111
  Receipt Date: 20111103
  Transmission Date: 20120403
  Serious: Yes (Hospitalization, Other)
  Sender: FDA-Public Use
  Company Number: PHFR2010GB06063

PATIENT
  Sex: Male

DRUGS (4)
  1. OMACOR [Concomitant]
     Indication: SCHIZOPHRENIA
     Dosage: UNK
  2. CLOZARIL [Suspect]
     Indication: SCHIZOPHRENIA
     Dosage: UNK
     Route: 048
     Dates: start: 20050610
  3. SULPIRIDE [Concomitant]
     Dosage: 400 MG, QD
  4. HYOSCINE HYDROBROMIDE [Concomitant]
     Indication: SALIVARY HYPERSECRETION
     Dosage: 300 UG, QD

REACTIONS (6)
  - WHITE BLOOD CELL COUNT DECREASED [None]
  - VOMITING [None]
  - VIRAL INFECTION [None]
  - PSYCHOTIC DISORDER [None]
  - NEUTROPENIA [None]
  - NASOPHARYNGITIS [None]
